FAERS Safety Report 9185226 (Version 4)
Quarter: 2013Q2

REPORT INFORMATION
  Report Type: Spontaneous
  Country: IT (occurrence: IT)
  Receive Date: 20130325
  Receipt Date: 20130520
  Transmission Date: 20140414
  Serious: Yes (Life-Threatening, Other)
  Sender: FDA-Public Use
  Company Number: IT-BIOGENIDEC-2013BI025128

PATIENT
  Age: 49 Year
  Sex: Male

DRUGS (1)
  1. TYSABRI [Suspect]
     Indication: MULTIPLE SCLEROSIS
     Route: 042
     Dates: start: 20100910, end: 20130228

REACTIONS (4)
  - Lung squamous cell carcinoma metastatic [Unknown]
  - Metastases to bone [Unknown]
  - Metastases to abdominal wall [Unknown]
  - Metastases to liver [Unknown]
